FAERS Safety Report 14345019 (Version 4)
Quarter: 2020Q2

REPORT INFORMATION
  Report Type: Report from Study
  Country: CA (occurrence: CA)
  Receive Date: 20180103
  Receipt Date: 20200516
  Transmission Date: 20200713
  Serious: Yes (Hospitalization, Other)
  Sender: FDA-Public Use
  Company Number: CA-ROCHE-1919555

PATIENT
  Age: 74 Year
  Sex: Male

DRUGS (15)
  1. ACETAMINOPHEN. [Concomitant]
     Active Substance: ACETAMINOPHEN
     Indication: PREMEDICATION
     Route: 048
     Dates: start: 20170320
  2. DIPHENHYDRAMINE. [Concomitant]
     Active Substance: DIPHENHYDRAMINE
     Indication: PREMEDICATION
     Route: 048
     Dates: start: 20170320
  3. TYLENOL [Concomitant]
     Active Substance: ACETAMINOPHEN
  4. ARANESP [Concomitant]
     Active Substance: DARBEPOETIN ALFA
     Indication: HAEMOGLOBIN
     Route: 065
  5. ACTEMRA [Suspect]
     Active Substance: TOCILIZUMAB
     Indication: RHEUMATOID ARTHRITIS
     Route: 058
     Dates: start: 20180614, end: 2018
  6. ACTEMRA [Suspect]
     Active Substance: TOCILIZUMAB
     Indication: VASCULITIS
     Dosage: ON HOLD DUE TO HOSPITALIZATION, COVID, CELLULITIS
     Route: 058
     Dates: start: 2018, end: 20200208
  7. RANITIDINE. [Concomitant]
     Active Substance: RANITIDINE
  8. METHYLPREDNISOLONE. [Concomitant]
     Active Substance: METHYLPREDNISOLONE
     Indication: PREMEDICATION
     Route: 042
     Dates: start: 20170320
  9. PREGABALIN. [Concomitant]
     Active Substance: PREGABALIN
  10. RITUXAN [Suspect]
     Active Substance: RITUXIMAB
     Indication: RHEUMATOID ARTHRITIS
     Dosage: RECENT INFUSION 10/APR/2017, 18/OCT/2017
     Route: 042
     Dates: start: 20170320
  11. ACTEMRA [Suspect]
     Active Substance: TOCILIZUMAB
     Route: 058
     Dates: start: 20200502
  12. SPIRONOLACTONE. [Concomitant]
     Active Substance: SPIRONOLACTONE
  13. HYDROMORPHONE [Concomitant]
     Active Substance: HYDROMORPHONE
     Dosage: BREAKTHROUGH + TYLENOL NOS
     Route: 065
  14. LASIX [Concomitant]
     Active Substance: FUROSEMIDE
  15. AZATHIOPRINE. [Concomitant]
     Active Substance: AZATHIOPRINE
     Route: 048

REACTIONS (11)
  - Pneumonia aspiration [Not Recovered/Not Resolved]
  - Joint swelling [Not Recovered/Not Resolved]
  - Pain in extremity [Recovering/Resolving]
  - Rash [Unknown]
  - Thrombosis [Recovered/Resolved]
  - Cellulitis [Unknown]
  - SARS-CoV-2 test positive [Unknown]
  - Peripheral swelling [Not Recovered/Not Resolved]
  - Herpes zoster [Unknown]
  - Cellulitis [Recovering/Resolving]
  - Arthralgia [Not Recovered/Not Resolved]

NARRATIVE: CASE EVENT DATE: 201704
